FAERS Safety Report 7798861-1 (Version None)
Quarter: 2011Q4

REPORT INFORMATION
  Report Type: 
  Country: None (occurrence: None)
  Receive Date: 20111006
  Receipt Date: 20110928
  Transmission Date: 20120403
  Serious: Yes (Other)
  Sender: FDA-Public Use
  Company Number: US-US-EMD SERONO, INC.-7086366

PATIENT
  Sex: Female

DRUGS (6)
  1. REBIF [Suspect]
     Indication: PRODUCT USED FOR UNKNOWN INDICATION
     Route: 058
     Dates: start: 20110916
  2. XANAX [Concomitant]
  3. DETROL LA [Concomitant]
  4. PROTONIX [Concomitant]
  5. TEMAZEPAM [Concomitant]
  6. VICODIN [Concomitant]

REACTIONS (5)
  - SNEEZING [None]
  - HEADACHE [None]
  - HYPERTENSION [None]
  - PALPITATIONS [None]
  - FATIGUE [None]
